FAERS Safety Report 8155463-5 (Version None)
Quarter: 2012Q1

REPORT INFORMATION
  Report Type: 
  Country: None (occurrence: None)
  Receive Date: 20120215
  Receipt Date: 20120209
  Transmission Date: 20120608
  Serious: Yes (Hospitalization)
  Sender: FDA-Public Use
  Company Number: WAES 1104USA02747

PATIENT
  Age: 46 Year
  Sex: Female

DRUGS (9)
  1. ASPIRIN [Concomitant]
  2. BLINDED THERAPY [Suspect]
     Indication: TYPE 2 DIABETES MELLITUS
     Dosage: UNK;UNK
     Dates: start: 20100826
  3. NOVOLOG [Suspect]
     Indication: TYPE 2 DIABETES MELLITUS
     Dosage: 27 IU/UNK/UNK
  4. HYDRODIURIL [Suspect]
     Indication: PRODUCT USED FOR UNKNOWN INDICATION
     Dosage: UNK;UNK
  5. SPIRONOLACTONE [Suspect]
     Indication: PRODUCT USED FOR UNKNOWN INDICATION
     Dosage: UNK;UNK
  6. PRINIVIL [Suspect]
     Indication: PRODUCT USED FOR UNKNOWN INDICATION
     Dosage: UNK;PO
     Route: 048
     Dates: start: 20070101, end: 20110101
  7. LANTUS [Suspect]
     Indication: TYPE 2 DIABETES MELLITUS
     Dosage: 20 IU/UNK/UNK
  8. METFORMIN HCL [Suspect]
     Indication: TYPE 2 DIABETES MELLITUS
     Dosage: 500 MG/UNK/UNK
  9. CELEBREX [Suspect]
     Dosage: UNK;UNK

REACTIONS (3)
  - DEHYDRATION [None]
  - ENTERITIS [None]
  - RENAL FAILURE ACUTE [None]
